FAERS Safety Report 5731790-3 (Version None)
Quarter: 2008Q2

REPORT INFORMATION
  Report Type: 
  Country: None (occurrence: None)
  Receive Date: 20080508
  Receipt Date: 20080430
  Transmission Date: 20081010
  Serious: Yes (Death)
  Sender: FDA-Public Use
  Company Number: US-ROCHE-562034

PATIENT
  Sex: Male

DRUGS (2)
  1. PEG-INTERFERON A-2A (RO 25-8310) [Suspect]
     Route: 065
     Dates: start: 20070615, end: 20080201
  2. RIBAVIRIN [Suspect]
     Route: 065
     Dates: start: 20070615, end: 20080201

REACTIONS (1)
  - DEATH [None]
